FAERS Safety Report 13820280 (Version 2)
Quarter: 2017Q3

REPORT INFORMATION
  Report Type: Spontaneous
  Country: IT (occurrence: IT)
  Receive Date: 20170801
  Receipt Date: 20170810
  Transmission Date: 20171127
  Serious: Yes (Death, Other)
  Sender: FDA-Public Use
  Company Number: IT-AUROBINDO-AUR-APL-2017-38397

PATIENT
  Age: 13 Year
  Sex: Male

DRUGS (3)
  1. VORICONAZOLE. [Suspect]
     Active Substance: VORICONAZOLE
     Dosage: 8 MG/KG/DAY
     Route: 065
  2. ALLOPURINOL. [Suspect]
     Active Substance: ALLOPURINOL
     Indication: RENAL FAILURE
     Route: 065
  3. VORICONAZOLE. [Suspect]
     Active Substance: VORICONAZOLE
     Indication: ASPERGILLUS INFECTION
     Dosage: 12 MG/KG/DAY
     Route: 065

REACTIONS (5)
  - Generalised erythema [Recovered/Resolved]
  - Epidermolysis [Recovered/Resolved]
  - Multiple organ dysfunction syndrome [Fatal]
  - Nikolsky^s sign [Recovered/Resolved]
  - Toxic epidermal necrolysis [Recovered/Resolved]
